FAERS Safety Report 18340872 (Version 1)
Quarter: 2020Q4

REPORT INFORMATION
  Report Type: Spontaneous
  Country: ES (occurrence: ES)
  Receive Date: 20201003
  Receipt Date: 20201003
  Transmission Date: 20210113
  Serious: Yes (Other)
  Sender: FDA-Public Use
  Company Number: ES-AUROBINDO-AUR-APL-2020-050209

PATIENT
  Age: 56 Year
  Sex: Female

DRUGS (1)
  1. GABAPENTIN 100MG [Suspect]
     Active Substance: GABAPENTIN
     Indication: PRODUCT USED FOR UNKNOWN INDICATION
     Dosage: SINCE 7 YEARS AGO.
     Route: 065

REACTIONS (15)
  - Amblyopia [Not Recovered/Not Resolved]
  - Taste disorder [Not Recovered/Not Resolved]
  - Burning sensation [Not Recovered/Not Resolved]
  - Dry mouth [Not Recovered/Not Resolved]
  - Salivary gland enlargement [Not Recovered/Not Resolved]
  - Dysstasia [Not Recovered/Not Resolved]
  - Dyspnoea [Not Recovered/Not Resolved]
  - Dysphagia [Not Recovered/Not Resolved]
  - Obstruction [Not Recovered/Not Resolved]
  - Vision blurred [Not Recovered/Not Resolved]
  - Oral discomfort [Not Recovered/Not Resolved]
  - Hypoaesthesia [Not Recovered/Not Resolved]
  - Tongue discomfort [Not Recovered/Not Resolved]
  - Eye irritation [Not Recovered/Not Resolved]
  - Swollen tongue [Not Recovered/Not Resolved]

NARRATIVE: CASE EVENT DATE: 2019
